FAERS Safety Report 11014591 (Version 2)
Quarter: 2015Q2

REPORT INFORMATION
  Report Type: Spontaneous
  Country: US (occurrence: US)
  Receive Date: 20150412
  Receipt Date: 20150525
  Transmission Date: 20150821
  Serious: No
  Sender: FDA-Public Use
  Company Number: US-JNJFOC-20130620925

PATIENT
  Age: 56 Year
  Sex: Female
  Weight: 74.84 kg

DRUGS (3)
  1. TRAMDOL HYDROCHLORIDE [Suspect]
     Active Substance: TRAMADOL HYDROCHLORIDE
     Indication: BACK PAIN
     Route: 048
     Dates: start: 20130624, end: 20130624
  2. BENADRYL ALLERGY [Suspect]
     Active Substance: DIPHENHYDRAMINE HYDROCHLORIDE
     Indication: URTICARIA
     Route: 048
     Dates: start: 20130626
  3. CHLORTRIMETON [Suspect]
     Active Substance: CHLORPHENIRAMINE MALEATE
     Indication: URTICARIA
     Route: 048
     Dates: start: 20130625

REACTIONS (4)
  - Pruritus [Not Recovered/Not Resolved]
  - Tachycardia [Recovered/Resolved]
  - Urticaria [Not Recovered/Not Resolved]
  - Lethargy [Not Recovered/Not Resolved]

NARRATIVE: CASE EVENT DATE: 20130625
